FAERS Safety Report 14776701 (Version 1)
Quarter: 2018Q2

REPORT INFORMATION
  Report Type: Spontaneous
  Country: FR (occurrence: FR)
  Receive Date: 20180419
  Receipt Date: 20180419
  Transmission Date: 20180711
  Serious: Yes (Other)
  Sender: FDA-Public Use
  Company Number: FR-MERCK KGAA-2046002

PATIENT
  Age: 56 Year
  Sex: Female

DRUGS (1)
  1. NOVOTHYROX [Suspect]
     Active Substance: LEVOTHYROXINE SODIUM
     Indication: HYPOTHYROIDISM
     Dates: start: 2017, end: 2017

REACTIONS (16)
  - Dizziness [Recovering/Resolving]
  - Asthenia [Recovering/Resolving]
  - General physical health deterioration [Recovering/Resolving]
  - Depressed mood [Recovering/Resolving]
  - Antisocial behaviour [Recovering/Resolving]
  - Social problem [Recovering/Resolving]
  - Loss of personal independence in daily activities [Recovering/Resolving]
  - Fatigue [Recovering/Resolving]
  - Blood thyroid stimulating hormone decreased [Recovering/Resolving]
  - Dyspepsia [Recovering/Resolving]
  - Nausea [Recovering/Resolving]
  - Arthralgia [Recovering/Resolving]
  - Weight decreased [Recovering/Resolving]
  - Alopecia [Recovering/Resolving]
  - Apathy [Recovering/Resolving]
  - Affect lability [Recovering/Resolving]

NARRATIVE: CASE EVENT DATE: 2017
